FAERS Safety Report 23404196 (Version 1)
Quarter: 2024Q1

REPORT INFORMATION
  Report Type: Spontaneous
  Country: TW (occurrence: TW)
  Receive Date: 20240116
  Receipt Date: 20240116
  Transmission Date: 20240410
  Serious: Yes (Other)
  Sender: FDA-Public Use
  Company Number: TW-002147023-NVSC2024TW006648

PATIENT
  Sex: Female

DRUGS (4)
  1. MYFORTIC [Suspect]
     Active Substance: MYCOPHENOLATE SODIUM
     Indication: C3 glomerulopathy
     Dosage: 180 MG, BID
     Route: 065
     Dates: start: 20220505, end: 20240108
  2. EXFORGE HCT [Concomitant]
     Active Substance: AMLODIPINE BESYLATE\HYDROCHLOROTHIAZIDE\VALSARTAN
     Indication: Product used for unknown indication
     Dosage: 10 MG, QD
     Route: 065
     Dates: start: 20220505
  3. EXFORGE HCT [Concomitant]
     Active Substance: AMLODIPINE BESYLATE\HYDROCHLOROTHIAZIDE\VALSARTAN
     Dosage: 160 MG, QD
     Route: 065
     Dates: start: 20220505
  4. EXFORGE HCT [Concomitant]
     Active Substance: AMLODIPINE BESYLATE\HYDROCHLOROTHIAZIDE\VALSARTAN
     Dosage: 25 MG, QD
     Route: 065
     Dates: start: 20220505

REACTIONS (8)
  - Treatment failure [Unknown]
  - Proteinuria [Unknown]
  - White blood cell count abnormal [Unknown]
  - Lipohypertrophy [Unknown]
  - Urine protein/creatinine ratio increased [Unknown]
  - Glomerular filtration rate decreased [Unknown]
  - Insomnia [Unknown]
  - Acne [Unknown]

NARRATIVE: CASE EVENT DATE: 20230203
